FAERS Safety Report 16333416 (Version 1)
Quarter: 2019Q2

REPORT INFORMATION
  Report Type: Spontaneous
  Country: US (occurrence: US)
  Receive Date: 20190520
  Receipt Date: 20190520
  Transmission Date: 20190711
  Serious: No
  Sender: FDA-Public Use
  Company Number: US-VANDA PHARMACEUTICALS, INC-2019ILOUS001753

PATIENT
  Age: 19 Year
  Sex: Male

DRUGS (1)
  1. FANAPT [Suspect]
     Active Substance: ILOPERIDONE
     Indication: BIPOLAR DISORDER
     Dosage: UNK

REACTIONS (1)
  - Hypoglycaemia [Unknown]
